FAERS Safety Report 13607971 (Version 1)
Quarter: 2017Q2

REPORT INFORMATION
  Report Type: Spontaneous
  Country: US (occurrence: US)
  Receive Date: 20170602
  Receipt Date: 20170602
  Transmission Date: 20170830
  Serious: Yes (Life-Threatening, Other)
  Sender: FDA-Public Use
  Company Number: US-MYLANLABS-2017M1031458

PATIENT

DRUGS (1)
  1. EPINEPHRINE INJECTION USP AUTO-INJECTOR 0.30 MG (EPINEPHRINE) INJECTION [Suspect]
     Active Substance: EPINEPHRINE
     Indication: ANAPHYLACTIC REACTION
     Dosage: UNK UNK, ONCE
     Route: 030
     Dates: start: 20170522, end: 20170522

REACTIONS (4)
  - Device failure [Recovered/Resolved]
  - Expired product administered [None]
  - Headache [Not Recovered/Not Resolved]
  - Wrong technique in product usage process [None]

NARRATIVE: CASE EVENT DATE: 201705
